FAERS Safety Report 19884238 (Version 1)
Quarter: 2021Q3

REPORT INFORMATION
  Report Type: Spontaneous
  Country: US (occurrence: US)
  Receive Date: 20210926
  Receipt Date: 20210926
  Transmission Date: 20211014
  Serious: No
  Sender: FDA-Public Use
  Company Number: None

PATIENT
  Age: 32 Year
  Sex: Male

DRUGS (1)
  1. QVAR REDIHALER [Suspect]
     Active Substance: BECLOMETHASONE DIPROPIONATE
     Indication: ASTHMA
     Dosage: QUANTITY:1 PUFF(S);?
     Route: 055

REACTIONS (3)
  - Incorrect dose administered by device [None]
  - Asthma [None]
  - Condition aggravated [None]

NARRATIVE: CASE EVENT DATE: 20210925
